FAERS Safety Report 20859929 (Version 1)
Quarter: 2022Q2

REPORT INFORMATION
  Report Type: Spontaneous
  Country: US (occurrence: US)
  Receive Date: 20220523
  Receipt Date: 20220523
  Transmission Date: 20220721
  Serious: No
  Sender: FDA-Public Use
  Company Number: US-JNJFOC-20220534403

PATIENT
  Age: 25 Year
  Sex: Female

DRUGS (1)
  1. WOMENS ROGAINE UNSCENTED [Suspect]
     Active Substance: MINOXIDIL
     Indication: Alopecia
     Dosage: DOSE: UNSURE, BECAUSE IT DIDN^T COME OUT AS FOAM AND ONLY APPLIED IN THE TWO SMALL AREAS ONE TIME ON
     Route: 061
     Dates: start: 202205

REACTIONS (6)
  - Application site pain [Recovered/Resolved]
  - Lacrimation increased [Recovered/Resolved]
  - Poor quality product administered [Unknown]
  - Incorrect dose administered [Unknown]
  - Product odour abnormal [Unknown]
  - Product container issue [Unknown]

NARRATIVE: CASE EVENT DATE: 20220501
